FAERS Safety Report 23449083 (Version 1)
Quarter: 2024Q1

REPORT INFORMATION
  Report Type: Report from Study
  Country: NL (occurrence: NL)
  Receive Date: 20240128
  Receipt Date: 20240128
  Transmission Date: 20240410
  Serious: Yes (Life-Threatening, Hospitalization, Other)
  Sender: FDA-Public Use
  Company Number: NL-ABBVIE-5605299

PATIENT
  Age: 66 Year
  Sex: Female

DRUGS (4)
  1. CARBIDOPA\LEVODOPA [Suspect]
     Active Substance: CARBIDOPA\LEVODOPA
     Indication: Parkinson^s disease
     Dosage: REMAINS AT 24 HOURS.
     Route: 050
     Dates: start: 20190201
  2. CARBIDOPA\LEVODOPA [Suspect]
     Active Substance: CARBIDOPA\LEVODOPA
     Dosage: MD:4.0ML; CD:2.6ML/H; ED:1.0ML? REMAINS AT 24 HOURS.
     Route: 050
     Dates: start: 20231212, end: 20240122
  3. CARBIDOPA\LEVODOPA [Suspect]
     Active Substance: CARBIDOPA\LEVODOPA
     Dosage: MD:4.0ML; CD:2.6ML/H; ED:1.0ML; CND:1.6ML/H; END:1.0ML?REMAINS AT 16 HOURS.
     Route: 050
     Dates: start: 20240122
  4. POLYETHYLENE GLYCOLS [Concomitant]
     Active Substance: POLYETHYLENE GLYCOLS
     Indication: Gastrointestinal motility disorder

REACTIONS (9)
  - Illness [Not Recovered/Not Resolved]
  - Device kink [Recovered/Resolved]
  - Hepatic failure [Not Recovered/Not Resolved]
  - Blood disorder [Not Recovered/Not Resolved]
  - Pneumonia [Not Recovered/Not Resolved]
  - Sepsis [Not Recovered/Not Resolved]
  - Delirium [Not Recovered/Not Resolved]
  - C-reactive protein increased [Not Recovered/Not Resolved]
  - Renal failure [Not Recovered/Not Resolved]
